FAERS Safety Report 16827503 (Version 1)
Quarter: 2019Q3

REPORT INFORMATION
  Report Type: Report from Study
  Country: None (occurrence: NZ)
  Receive Date: 20190919
  Receipt Date: 20190919
  Transmission Date: 20191005
  Serious: Yes (Other)
  Sender: FDA-Public Use
  Company Number: NZ-ABBVIE-19K-118-2926301-00

PATIENT
  Weight: 45.3 kg

DRUGS (2)
  1. HUMIRA [Suspect]
     Active Substance: ADALIMUMAB
     Indication: CROHN^S DISEASE
     Route: 058
  2. AZATHIOPRINE. [Concomitant]
     Active Substance: AZATHIOPRINE
     Indication: PRODUCT USED FOR UNKNOWN INDICATION

REACTIONS (6)
  - Gastrointestinal wall thickening [Unknown]
  - Growth retardation [Unknown]
  - Faecal calprotectin increased [Unknown]
  - Enteral nutrition [Unknown]
  - Inflammation [Not Recovered/Not Resolved]
  - Large intestinal stenosis [Unknown]

NARRATIVE: CASE EVENT DATE: 2019
